FAERS Safety Report 18088363 (Version 2)
Quarter: 2020Q3

REPORT INFORMATION
  Report Type: Report from Study
  Country: BR (occurrence: BR)
  Receive Date: 20200729
  Receipt Date: 20200812
  Transmission Date: 20201103
  Serious: Yes (Life-Threatening, Hospitalization)
  Sender: FDA-Public Use
  Company Number: BR-SA-2020SA191026

PATIENT

DRUGS (11)
  1. MEROPENEM. [Concomitant]
     Active Substance: MEROPENEM
     Dosage: 1000 MG, PRN
     Route: 042
     Dates: start: 20200705, end: 20200716
  2. DIPIRONE [Concomitant]
     Active Substance: METAMIZOLE SODIUM
     Indication: PRE-EXISTING DISEASE
     Dosage: 1000 MG, PRN
     Route: 042
     Dates: start: 20200618
  3. AZITHROMYCIN ANHYDROUS. [Concomitant]
     Active Substance: AZITHROMYCIN ANHYDROUS
     Indication: PRE-EXISTING DISEASE
     Dosage: 500 MG, PRN
     Route: 042
     Dates: start: 20200618
  4. METHYLPREDNISOLONE. [Concomitant]
     Active Substance: METHYLPREDNISOLONE
     Dosage: 125 MG, QD
     Route: 042
     Dates: start: 20200619
  5. VANCOMYCIN [Concomitant]
     Active Substance: VANCOMYCIN
     Dosage: 1000 MG, BID
     Route: 042
     Dates: start: 20200705, end: 20200708
  6. CLAVULIN [AMOXICILLIN SODIUM;CLAVULANATE POTASSIUM] [Concomitant]
     Active Substance: AMOXICILLIN\CLAVULANATE POTASSIUM
     Indication: PRE-EXISTING DISEASE
     Dosage: 2 G, PRN
     Route: 042
     Dates: start: 20200618
  7. POLYMYXIN [Concomitant]
     Active Substance: POLYMYXIN
     Dosage: 4.5 DF; AMPULE, BID
     Route: 042
     Dates: start: 20200705, end: 20200708
  8. LINEZOLIDE [Concomitant]
     Active Substance: LINEZOLID
     Dosage: 600 MG, BID
     Route: 042
     Dates: start: 20200709, end: 20200715
  9. POTASSIUM CHLORIDE. [Concomitant]
     Active Substance: POTASSIUM CHLORIDE
     Dosage: 2 AMPULE PRN
     Route: 042
     Dates: start: 20200707, end: 20200707
  10. SARILUMAB [Suspect]
     Active Substance: SARILUMAB
     Indication: COVID-19
     Dosage: INTENDED DOSE (BAG): 1 INFUSION RATE (ML/H): 100, 1X
     Route: 042
     Dates: start: 20200618, end: 20200618
  11. FUROSEMIDE. [Concomitant]
     Active Substance: FUROSEMIDE
     Dosage: 20 MG, PRN
     Route: 042
     Dates: start: 20200621, end: 20200711

REACTIONS (1)
  - Soft tissue infection [Recovered/Resolved]

NARRATIVE: CASE EVENT DATE: 20200719
